FAERS Safety Report 8190001-2 (Version None)
Quarter: 2012Q1

REPORT INFORMATION
  Report Type: 
  Country: None (occurrence: None)
  Receive Date: 20120305
  Receipt Date: 20120227
  Transmission Date: 20120608
  Serious: Yes (Other)
  Sender: FDA-Public Use
  Company Number: 2012MA002661

PATIENT
  Age: 52 Year
  Sex: Male

DRUGS (8)
  1. DIGOXIN [Concomitant]
  2. MICONAZOLE NITRATE [Suspect]
     Indication: PRODUCT USED FOR UNKNOWN INDICATION
     Dosage: 400 MG;QD;PO
     Route: 048
  3. DIPYRIDAMOLE [Concomitant]
  4. FUROSEMIDE [Concomitant]
  5. BETAMETHASONE [Concomitant]
  6. WARFARIN SODIUM [Suspect]
     Dosage: 6 MG;QD
  7. TRIAMTEREN [Concomitant]
  8. VERAPAMIL [Concomitant]

REACTIONS (3)
  - INTERNATIONAL NORMALISED RATIO INCREASED [None]
  - DRUG INTERACTION [None]
  - MOUTH HAEMORRHAGE [None]
